FAERS Safety Report 15868827 (Version 1)
Quarter: 2019Q1

REPORT INFORMATION
  Report Type: Spontaneous
  Country: FR (occurrence: FR)
  Receive Date: 20190125
  Receipt Date: 20190125
  Transmission Date: 20190417
  Serious: Yes (Hospitalization)
  Sender: FDA-Public Use
  Company Number: FR-NOVOPROD-643502

PATIENT
  Age: 61 Year
  Sex: Female

DRUGS (4)
  1. HYDROCORTISONE ROUSSEL             /00028601/ [Suspect]
     Active Substance: HYDROCORTISONE
     Indication: PITUITARY TUMOUR BENIGN
     Dosage: 1.5 DF, QD
     Route: 048
  2. EVISTA [Suspect]
     Active Substance: RALOXIFENE HYDROCHLORIDE
     Indication: OSTEOPOROSIS PROPHYLAXIS
     Dosage: 60 MG, QD
     Route: 048
  3. MINIRINMELT [Suspect]
     Active Substance: DESMOPRESSIN ACETATE
     Indication: PITUITARY TUMOUR BENIGN
     Dosage: UNK
     Route: 048
  4. NORDITROPIN [Suspect]
     Active Substance: SOMATROPIN
     Indication: PITUITARY TUMOUR BENIGN
     Dosage: 20 IU, QD
     Route: 058

REACTIONS (2)
  - Ischaemic stroke [Recovered/Resolved]
  - Off label use [Unknown]

NARRATIVE: CASE EVENT DATE: 20170515
